FAERS Safety Report 5693320-4 (Version None)
Quarter: 2008Q2

REPORT INFORMATION
  Report Type: 
  Country: None (occurrence: None)
  Receive Date: 20080403
  Receipt Date: 20071203
  Transmission Date: 20081010
  Serious: No
  Sender: FDA-Public Use
  Company Number: US-BAYER-200716012NA

PATIENT
  Age: 31 Year
  Sex: Female
  Weight: 112 kg

DRUGS (4)
  1. MIRENA [Suspect]
     Indication: CONTRACEPTION
     Dates: start: 20071011
  2. DAYTNAMA NOS [Concomitant]
     Indication: DRUG USE FOR UNKNOWN INDICATION
  3. CONCERTA [Concomitant]
  4. VITAMIN B [Concomitant]

REACTIONS (2)
  - IUCD COMPLICATION [None]
  - VAGINAL HAEMORRHAGE [None]
